FAERS Safety Report 5161752-9 (Version None)
Quarter: 2006Q4

REPORT INFORMATION
  Report Type: 
  Country: None (occurrence: None)
  Receive Date: 20061130
  Receipt Date: 20061123
  Transmission Date: 20070319
  Serious: Yes (Death, Life-Threatening)
  Sender: FDA-Public Use
  Company Number: FR-GLAXOSMITHKLINE-B0447803B

PATIENT
  Sex: Male

DRUGS (4)
  1. TRIZIVIR [Suspect]
     Indication: ANTIVIRAL PROPHYLAXIS
     Dosage: 1UNIT TWICE PER DAY
     Dates: start: 20030715
  2. LEVOTHYROXINE SODIUM [Suspect]
     Indication: HYPOTHYROIDISM
     Dosage: 75MCG PER DAY
     Dates: start: 20051007, end: 20060203
  3. ORELOX [Concomitant]
     Dosage: 100MG PER DAY
     Dates: start: 20060101
  4. OTIPAX [Concomitant]
     Dates: start: 20060101

REACTIONS (2)
  - DRUG EXPOSURE DURING PREGNANCY [None]
  - INTRA-UTERINE DEATH [None]
